FAERS Safety Report 13071467 (Version 1)
Quarter: 2016Q4

REPORT INFORMATION
  Report Type: Spontaneous
  Country: US (occurrence: US)
  Receive Date: 20161228
  Receipt Date: 20161228
  Transmission Date: 20170207
  Serious: Yes (Hospitalization)
  Sender: FDA-Public Use
  Company Number: None

PATIENT
  Age: 17 Year
  Sex: Male
  Weight: 82.2 kg

DRUGS (4)
  1. CYTARABINE. [Suspect]
     Active Substance: CYTARABINE
     Dates: end: 20161219
  2. CYCLOPHOSPHAMIDE. [Suspect]
     Active Substance: CYCLOPHOSPHAMIDE
     Dates: end: 20161215
  3. METHOTREXATE. [Suspect]
     Active Substance: METHOTREXATE
     Dates: end: 20161215
  4. MERCAPTOPURINE. [Suspect]
     Active Substance: MERCAPTOPURINE
     Dates: end: 20161220

REACTIONS (14)
  - Musculoskeletal stiffness [None]
  - Pseudomonas test positive [None]
  - Pyrexia [None]
  - Meningitis [None]
  - Mydriasis [None]
  - CSF culture positive [None]
  - Headache [None]
  - Pain in extremity [None]
  - Mental status changes [None]
  - Cerebral ventricle dilatation [None]
  - Fatigue [None]
  - Back pain [None]
  - Infective aneurysm [None]
  - Ischaemia [None]

NARRATIVE: CASE EVENT DATE: 20161221
